FAERS Safety Report 9288618 (Version 1)
Quarter: 2013Q2

REPORT INFORMATION
  Report Type: Spontaneous
  Country: US (occurrence: None)
  Receive Date: 20130513
  Receipt Date: 20130513
  Transmission Date: 20140414
  Serious: No
  Sender: FDA-Public Use
  Company Number: None

PATIENT
  Age: 70 Year
  Sex: Female

DRUGS (1)
  1. XELODA [Suspect]
     Indication: HEPATIC CANCER
     Route: 048
     Dates: start: 20130423, end: 20130509

REACTIONS (2)
  - Pain [None]
  - Migraine [None]
